FAERS Safety Report 16114798 (Version 2)
Quarter: 2019Q2

REPORT INFORMATION
  Report Type: Spontaneous
  Country: US (occurrence: US)
  Receive Date: 20190325
  Receipt Date: 20190419
  Transmission Date: 20190711
  Serious: Yes (Hospitalization, Other)
  Sender: FDA-Public Use
  Company Number: US-TARO-2019TAR00203

PATIENT
  Age: 17 Year
  Sex: Male
  Weight: 74.38 kg

DRUGS (5)
  1. GABAPENTIN (AMNEAL) [Concomitant]
  2. CLOBETASOL PROPIONATE TOPICAL SOLUTION USP 0.05% [Suspect]
     Active Substance: CLOBETASOL PROPIONATE
     Indication: SEBORRHOEIC DERMATITIS
     Dosage: UNK, AS NEEDED EVERY 1-2 MONTHS FOR COUPLE DAYS
     Route: 061
     Dates: start: 2016
  3. BUSPAR (TEVA) [Concomitant]
  4. RISPERIDONE (SOLCO) [Concomitant]
  5. KETOCONAZOLE. [Concomitant]
     Active Substance: KETOCONAZOLE

REACTIONS (7)
  - Psychotic disorder [Unknown]
  - Suicidal ideation [Not Recovered/Not Resolved]
  - Coeliac disease [Not Recovered/Not Resolved]
  - Seborrhoeic dermatitis [Not Recovered/Not Resolved]
  - Hyperthyroidism [Not Recovered/Not Resolved]
  - Thyroiditis [Unknown]
  - Depression [Not Recovered/Not Resolved]

NARRATIVE: CASE EVENT DATE: 2018
